FAERS Safety Report 6137371-4 (Version None)
Quarter: 2009Q1

REPORT INFORMATION
  Report Type: 
  Country: None (occurrence: None)
  Receive Date: 20090330
  Receipt Date: 20090316
  Transmission Date: 20090719
  Serious: Yes (Other)
  Sender: FDA-Public Use
  Company Number: IT-GENENTECH-279863

PATIENT
  Sex: Male

DRUGS (1)
  1. AVASTIN [Suspect]
     Indication: MACULOPATHY
     Dosage: 5 MG, UNK
     Route: 031
     Dates: start: 20090222, end: 20090222

REACTIONS (1)
  - ENDOPHTHALMITIS [None]
